FAERS Safety Report 18863559 (Version 2)
Quarter: 2021Q1

REPORT INFORMATION
  Report Type: Report from Study
  Country: US (occurrence: US)
  Receive Date: 20210209
  Receipt Date: 20210218
  Transmission Date: 20210420
  Serious: Yes (Other)
  Sender: FDA-Public Use
  Company Number: US-BAUSCH-BL-2021-004608

PATIENT
  Age: 64 Year
  Sex: Male

DRUGS (1)
  1. XIFAXAN [Suspect]
     Active Substance: RIFAXIMIN
     Indication: HEPATIC ENCEPHALOPATHY
     Route: 048
     Dates: start: 202009

REACTIONS (4)
  - Inability to afford medication [Unknown]
  - Fall [Unknown]
  - Coronavirus infection [Unknown]
  - Hip fracture [Unknown]

NARRATIVE: CASE EVENT DATE: 202012
